FAERS Safety Report 4522139-2 (Version None)
Quarter: 2004Q4

REPORT INFORMATION
  Report Type: 
  Country: None (occurrence: None)
  Receive Date: 20041206
  Receipt Date: 20041118
  Transmission Date: 20050328
  Serious: Yes (Hospitalization)
  Sender: FDA-Public Use
  Company Number: 205948

PATIENT
  Age: 47 Year
  Sex: Female

DRUGS (4)
  1. AVONEX [Suspect]
     Indication: MULTIPLE SCLEROSIS
     Dosage: 30 UG; QW; IM
     Route: 030
     Dates: start: 20020201
  2. FLUOXETINE [Concomitant]
  3. PROVIGIL [Concomitant]
  4. PROPRANOLOL [Concomitant]

REACTIONS (2)
  - ANIMAL BITE [None]
  - CELLULITIS [None]
